FAERS Safety Report 22239370 (Version 2)
Quarter: 2023Q2

REPORT INFORMATION
  Report Type: Report from Study
  Country: CO (occurrence: CO)
  Receive Date: 20230421
  Receipt Date: 20230508
  Transmission Date: 20230721
  Serious: Yes (Other)
  Sender: FDA-Public Use
  Company Number: CO-JNJFOC-20230140264

PATIENT
  Age: 41 Year
  Sex: Male
  Weight: 65 kg

DRUGS (1)
  1. SIMPONI [Suspect]
     Active Substance: GOLIMUMAB
     Indication: Rheumatoid arthritis
     Dosage: DATE OF GOLIMUMAB LAST ADMINISTERED WAS ON 12-DEC-2022
     Route: 058
     Dates: start: 20211202, end: 20230223

REACTIONS (2)
  - Postoperative wound infection [Not Recovered/Not Resolved]
  - Limb reconstructive surgery [Not Recovered/Not Resolved]

NARRATIVE: CASE EVENT DATE: 20230130
